FAERS Safety Report 24443236 (Version 1)
Quarter: 2024Q4

REPORT INFORMATION
  Report Type: Spontaneous
  Country: TR (occurrence: TR)
  Receive Date: 20241016
  Receipt Date: 20241016
  Transmission Date: 20250115
  Serious: Yes (Death, Hospitalization)
  Sender: BIOGEN
  Company Number: TR-BIOGEN-2024BI01286432

PATIENT

DRUGS (1)
  1. SPINRAZA [Suspect]
     Active Substance: NUSINERSEN
     Indication: Spinal muscular atrophy
     Dosage: 2.4MG/ML VIAL
     Route: 050

REACTIONS (2)
  - Respiratory tract infection [Fatal]
  - Urinary tract infection [Unknown]
